FAERS Safety Report 8217798-7 (Version None)
Quarter: 2012Q1

REPORT INFORMATION
  Report Type: 
  Country: None (occurrence: None)
  Receive Date: 20120319
  Receipt Date: 20120307
  Transmission Date: 20120608
  Serious: Yes (Hospitalization)
  Sender: FDA-Public Use
  Company Number: US-JNJFOC-20120206887

PATIENT
  Sex: Female
  Weight: 63.5 kg

DRUGS (2)
  1. REMICADE [Suspect]
     Indication: RHEUMATOID ARTHRITIS
     Dosage: DOSE:4 UNITS, STARTED ABOUT 3 YEARS AGO OR LONGER
     Route: 042
     Dates: end: 20110101
  2. REMICADE [Suspect]
     Dosage: DOSE:4 UNITS
     Route: 042
     Dates: start: 20110101, end: 20111001

REACTIONS (8)
  - FALSE POSITIVE TUBERCULOSIS TEST [None]
  - MALAISE [None]
  - DISORIENTATION [None]
  - PYREXIA [None]
  - OXYGEN SATURATION DECREASED [None]
  - PAIN [None]
  - ORGANISING PNEUMONIA [None]
  - DECREASED IMMUNE RESPONSIVENESS [None]
